FAERS Safety Report 15413591 (Version 3)
Quarter: 2018Q4

REPORT INFORMATION
  Report Type: Report from Study
  Country: IT (occurrence: IT)
  Receive Date: 20180921
  Receipt Date: 20181116
  Transmission Date: 20190204
  Serious: Yes (Other)
  Sender: FDA-Public Use
  Company Number: IT-JNJFOC-20180921846

PATIENT

DRUGS (16)
  1. YONDELIS [Suspect]
     Active Substance: TRABECTEDIN
     Indication: SOFT TISSUE SARCOMA
     Route: 042
  2. OLAPARIB. [Suspect]
     Active Substance: OLAPARIB
     Indication: SOFT TISSUE SARCOMA
     Route: 048
  3. YONDELIS [Suspect]
     Active Substance: TRABECTEDIN
     Indication: BONE SARCOMA
     Route: 042
  4. OLAPARIB. [Suspect]
     Active Substance: OLAPARIB
     Indication: SOFT TISSUE SARCOMA
     Route: 048
  5. OLAPARIB. [Suspect]
     Active Substance: OLAPARIB
     Indication: BONE SARCOMA
     Route: 048
  6. YONDELIS [Suspect]
     Active Substance: TRABECTEDIN
     Indication: BONE SARCOMA
     Dosage: 24 HOUS INFUSION ON DAY
     Route: 042
  7. YONDELIS [Suspect]
     Active Substance: TRABECTEDIN
     Indication: SOFT TISSUE SARCOMA
     Route: 042
  8. YONDELIS [Suspect]
     Active Substance: TRABECTEDIN
     Indication: BONE SARCOMA
     Route: 042
  9. YONDELIS [Suspect]
     Active Substance: TRABECTEDIN
     Indication: SOFT TISSUE SARCOMA
     Route: 042
  10. OLAPARIB. [Suspect]
     Active Substance: OLAPARIB
     Indication: BONE SARCOMA
     Dosage: 100-300 MG BID
     Route: 048
  11. OLAPARIB. [Suspect]
     Active Substance: OLAPARIB
     Indication: SOFT TISSUE SARCOMA
     Route: 048
  12. OLAPARIB. [Suspect]
     Active Substance: OLAPARIB
     Indication: BONE SARCOMA
     Route: 048
  13. OLAPARIB. [Suspect]
     Active Substance: OLAPARIB
     Indication: SOFT TISSUE SARCOMA
     Dosage: 100-300 MG BID
     Route: 048
  14. YONDELIS [Suspect]
     Active Substance: TRABECTEDIN
     Indication: SOFT TISSUE SARCOMA
     Dosage: 24 HOUS INFUSION ON DAY
     Route: 042
  15. YONDELIS [Suspect]
     Active Substance: TRABECTEDIN
     Indication: BONE SARCOMA
     Route: 042
  16. OLAPARIB. [Suspect]
     Active Substance: OLAPARIB
     Indication: BONE SARCOMA
     Route: 048

REACTIONS (56)
  - Blood creatine phosphokinase increased [Unknown]
  - Hyperkalaemia [Unknown]
  - Pruritus [Unknown]
  - Hypothyroidism [Unknown]
  - Oedema peripheral [Unknown]
  - Blood alkaline phosphatase increased [Unknown]
  - Dysgeusia [Unknown]
  - Non-cardiac chest pain [Unknown]
  - Neutropenia [Unknown]
  - Aspartate aminotransferase increased [Unknown]
  - Weight increased [Unknown]
  - Toxicity to various agents [Unknown]
  - Decreased appetite [Unknown]
  - Stomatitis [Unknown]
  - Hypomagnesaemia [Unknown]
  - Hyperuricaemia [Unknown]
  - Diarrhoea [Unknown]
  - Electrocardiogram QT prolonged [Unknown]
  - Nausea [Unknown]
  - Protein total decreased [Unknown]
  - Blood bilirubin increased [Unknown]
  - Thrombocytopenia [Unknown]
  - Lymphopenia [Unknown]
  - Infection [Unknown]
  - Hypertension [Unknown]
  - Hypophosphataemia [Unknown]
  - Hyperthyroidism [Unknown]
  - Abdominal pain [Unknown]
  - Pyrexia [Unknown]
  - Hypoalbuminaemia [Unknown]
  - Febrile neutropenia [Unknown]
  - Leukopenia [Unknown]
  - Weight decreased [Unknown]
  - Folliculitis [Unknown]
  - Hirsutism [Unknown]
  - Arthralgia [Unknown]
  - Blood creatinine increased [Unknown]
  - Insomnia [Unknown]
  - Anaemia [Unknown]
  - Alanine aminotransferase increased [Unknown]
  - Hyponatraemia [Unknown]
  - Fatigue [Unknown]
  - Gastritis [Unknown]
  - Macrocytosis [Unknown]
  - Constipation [Unknown]
  - Myalgia [Unknown]
  - Amylase increased [Unknown]
  - Dyspnoea [Unknown]
  - Vertigo [Unknown]
  - Gamma-glutamyltransferase increased [Unknown]
  - Hypokalaemia [Unknown]
  - Hyperglycaemia [Unknown]
  - Headache [Unknown]
  - Erythema [Unknown]
  - Lipase increased [Unknown]
  - Vomiting [Unknown]
